FAERS Safety Report 19391690 (Version 2)
Quarter: 2021Q3

REPORT INFORMATION
  Report Type: Spontaneous
  Country: JP (occurrence: JP)
  Receive Date: 20210609
  Receipt Date: 20210707
  Transmission Date: 20211014
  Serious: Yes (Hospitalization, Other)
  Sender: FDA-Public Use
  Company Number: JP-NOVOPROD-818604

PATIENT
  Age: 67 Year
  Sex: Male

DRUGS (5)
  1. NOVOSEVEN [Suspect]
     Active Substance: COAGULATION FACTOR VIIA RECOMBINANT HUMAN
     Indication: MUSCLE HAEMORRHAGE
     Dosage: 90MCG/KG, EVERY SIX HOURS
     Route: 042
     Dates: end: 2020
  2. NOVOSEVEN [Suspect]
     Active Substance: COAGULATION FACTOR VIIA RECOMBINANT HUMAN
     Indication: FACTOR VIII DEFICIENCY
     Dosage: 90MCG/KG,EVERY FOUR HOURS
     Route: 042
     Dates: start: 202011
  3. EMICIZUMAB. [Suspect]
     Active Substance: EMICIZUMAB
     Indication: FACTOR VIII DEFICIENCY
     Dosage: 1.5MG/KG/WEEK
     Route: 058
  4. EMICIZUMAB. [Suspect]
     Active Substance: EMICIZUMAB
     Indication: MUSCLE HAEMORRHAGE
  5. RED BLOOD CELLS, CONCENTRATED [Concomitant]
     Active Substance: HUMAN RED BLOOD CELL
     Indication: ANAEMIA
     Dosage: 2IU TWICE
     Route: 042
     Dates: start: 202011, end: 2020

REACTIONS (3)
  - Therapeutic response decreased [Recovering/Resolving]
  - Anaemia [Recovered/Resolved]
  - Muscle haemorrhage [Recovered/Resolved]

NARRATIVE: CASE EVENT DATE: 202011
